FAERS Safety Report 9838836 (Version 2)
Quarter: 2014Q3

REPORT INFORMATION
  Report Type: Spontaneous
  Country: US (occurrence: US)
  Receive Date: 20140123
  Receipt Date: 20140811
  Transmission Date: 20150326
  Serious: Yes (Hospitalization, Other)
  Sender: FDA-Public Use
  Company Number: US-009507513-1401USA010029

PATIENT
  Sex: Female

DRUGS (1)
  1. NUVARING [Suspect]
     Active Substance: ETHINYL ESTRADIOL\ETONOGESTREL
     Dosage: UNK, CHANGE EVERY 35 DAYS
     Route: 067
     Dates: start: 20081228

REACTIONS (19)
  - Drug eruption [Unknown]
  - Inguinal hernia repair [Unknown]
  - Hyponatraemia [Unknown]
  - Anaemia [Unknown]
  - Migraine [Unknown]
  - Abdominal operation [Unknown]
  - Ecchymosis [Unknown]
  - Hypokalaemia [Unknown]
  - Blepharitis [Unknown]
  - Pyrexia [Recovered/Resolved]
  - Vena cava filter insertion [Unknown]
  - Dermatitis [Unknown]
  - Deep vein thrombosis [Unknown]
  - Pulmonary embolism [Unknown]
  - Incorrect drug administration duration [Unknown]
  - Hypoxia [Unknown]
  - Liver function test abnormal [Unknown]
  - Appendicectomy [Unknown]
  - Asthma [Unknown]

NARRATIVE: CASE EVENT DATE: 20090418
